FAERS Safety Report 10100434 (Version 2)
Quarter: 2014Q2

REPORT INFORMATION
  Report Type: Spontaneous
  Country: JP (occurrence: JP)
  Receive Date: 20140423
  Receipt Date: 20140516
  Transmission Date: 20141212
  Serious: Yes (Hospitalization, Other)
  Sender: FDA-Public Use
  Company Number: JP-PFIZER INC-2014108241

PATIENT
  Age: 82 Year
  Sex: Male

DRUGS (1)
  1. ZITHROMAC [Suspect]
     Indication: PHARYNGITIS
     Dosage: 500 MG, DAILY
     Route: 048
     Dates: start: 20140407, end: 20140408

REACTIONS (2)
  - Loss of consciousness [Recovered/Resolved]
  - Electrocardiogram QT prolonged [Unknown]
